FAERS Safety Report 14665517 (Version 1)
Quarter: 2018Q1

REPORT INFORMATION
  Report Type: Report from Study
  Country: BR (occurrence: BR)
  Receive Date: 20180321
  Receipt Date: 20180321
  Transmission Date: 20180509
  Serious: Yes (Other)
  Sender: FDA-Public Use
  Company Number: BR-JNJFOC-20180316905

PATIENT
  Sex: Female
  Weight: 66.4 kg

DRUGS (7)
  1. GLIFAGE [Concomitant]
     Active Substance: METFORMIN HYDROCHLORIDE
     Route: 065
  2. FLUOXETINE [Concomitant]
     Active Substance: FLUOXETINE HYDROCHLORIDE
     Route: 065
  3. PREDNISONE. [Concomitant]
     Active Substance: PREDNISONE
     Route: 065
  4. SIMPONI [Suspect]
     Active Substance: GOLIMUMAB
     Indication: RHEUMATOID ARTHRITIS
     Route: 058
     Dates: start: 20150411, end: 201712
  5. ATENOLOL. [Concomitant]
     Active Substance: ATENOLOL
     Route: 065
  6. OMEPRAZOLE. [Concomitant]
     Active Substance: OMEPRAZOLE
     Route: 065
  7. SIMVASTATIN. [Concomitant]
     Active Substance: SIMVASTATIN
     Route: 065

REACTIONS (5)
  - Peripheral swelling [Recovering/Resolving]
  - Respiratory tract infection [Unknown]
  - Weight decreased [Unknown]
  - Drug ineffective [Unknown]
  - Urinary tract infection [Unknown]

NARRATIVE: CASE EVENT DATE: 2017
